FAERS Safety Report 7538148-5 (Version None)
Quarter: 2011Q2

REPORT INFORMATION
  Report Type: 
  Country: None (occurrence: None)
  Receive Date: 20110609
  Receipt Date: 20010115
  Transmission Date: 20111010
  Serious: Yes (Life-Threatening, Hospitalization, Other)
  Sender: FDA-Public Use
  Company Number: PHBS2001CA00708

PATIENT
  Sex: Female

DRUGS (2)
  1. DILANTIN [Concomitant]
     Dosage: UNKNOWN
  2. CLOZARIL [Suspect]
     Indication: SCHIZOPHRENIA
     Dosage: UNKNOWN
     Route: 048
     Dates: start: 19920907, end: 20010110

REACTIONS (2)
  - CONVULSION [None]
  - RENAL FAILURE [None]
